FAERS Safety Report 8771894 (Version 1)
Quarter: 2012Q4

REPORT INFORMATION
  Report Type: Report from Study
  Country: IN (occurrence: IN)
  Receive Date: 20120906
  Receipt Date: 20120906
  Transmission Date: 20130627
  Serious: Yes (Other)
  Sender: FDA-Public Use
  Company Number: IN-SANOFI-AVENTIS-2012SA062180

PATIENT
  Sex: Male

DRUGS (2)
  1. PENTOXIFYLLINE [Suspect]
     Indication: ALCOHOLIC HEPATITIS
     Route: 065
  2. PREDNISOLONE [Suspect]
     Indication: ALCOHOLIC HEPATITIS
     Route: 048

REACTIONS (1)
  - Pancreatitis acute [Unknown]
